FAERS Safety Report 26191137 (Version 1)
Quarter: 2025Q4

REPORT INFORMATION
  Report Type: Spontaneous
  Country: US (occurrence: None)
  Receive Date: 20251222
  Receipt Date: 20251222
  Transmission Date: 20260117
  Serious: No
  Sender: FDA-CTU
  Company Number: None

PATIENT
  Age: 46 Year
  Sex: Female

DRUGS (1)
  1. ARANESP [Suspect]
     Active Substance: DARBEPOETIN ALFA
     Dosage: OTHER STRENGTH :  100MCG/ML;?OTHER FREQUENCY : EVERY 14 DAYS;

REACTIONS (1)
  - Clostridium difficile infection [None]
